FAERS Safety Report 13738979 (Version 1)
Quarter: 2017Q3

REPORT INFORMATION
  Report Type: Spontaneous
  Country: US (occurrence: US)
  Receive Date: 20170710
  Receipt Date: 20170710
  Transmission Date: 20171127
  Serious: Yes (Hospitalization)
  Sender: FDA-Public Use
  Company Number: US-SAOL THERAPEUTICS-0701236007

PATIENT
  Sex: Male

DRUGS (4)
  1. BUPIVACAINE. [Suspect]
     Active Substance: BUPIVACAINE
     Dosage: 3.997 MG, \DAY
     Route: 037
  2. BACLOFEN. [Suspect]
     Active Substance: BACLOFEN
     Indication: BACK PAIN
     Dosage: 79.93 ?G, UNK
     Route: 037
  3. BACLOFEN. [Suspect]
     Active Substance: BACLOFEN
     Indication: SPINAL PAIN
  4. FENTANYL. [Suspect]
     Active Substance: FENTANYL
     Dosage: 399.7 ?G, \DAY
     Route: 037

REACTIONS (3)
  - Speech disorder [Recovered/Resolved]
  - Pain [Recovered/Resolved]
  - Off label use [Unknown]
